FAERS Safety Report 6463185-1 (Version None)
Quarter: 2009Q4

REPORT INFORMATION
  Report Type: 
  Country: None (occurrence: None)
  Receive Date: 20091124
  Receipt Date: 20091116
  Transmission Date: 20100525
  Serious: Yes (Death, Other)
  Sender: FDA-Public Use
  Company Number: 2009US004101

PATIENT
  Age: 60 Year
  Sex: Male

DRUGS (9)
  1. PROGRAF [Suspect]
     Indication: RENAL TRANSPLANT
  2. PREDNISONE [Concomitant]
  3. MYCOPHENOLATE MOFETIL [Concomitant]
  4. FUROSEMIDE [Concomitant]
  5. LISINOPRIL [Concomitant]
  6. ISOSORBIDE MONONITRATE [Concomitant]
  7. INSULIN (INSULIN) [Concomitant]
  8. LEVOTHYROXINE SODIUM [Concomitant]
  9. SERTRALINE HCL [Concomitant]

REACTIONS (33)
  - ATELECTASIS [None]
  - BACTERIAL INFECTION [None]
  - BLOOD CULTURE POSITIVE [None]
  - BLOOD PRESSURE DECREASED [None]
  - BUNDLE BRANCH BLOCK LEFT [None]
  - CACHEXIA [None]
  - CARDIAC MURMUR [None]
  - COCCIDIOIDOMYCOSIS [None]
  - CONFUSIONAL STATE [None]
  - DEPRESSION [None]
  - DIARRHOEA [None]
  - EJECTION FRACTION DECREASED [None]
  - EYE EXCISION [None]
  - FATIGUE [None]
  - FUNGAL TEST POSITIVE [None]
  - GENERALISED OEDEMA [None]
  - HYPOPHAGIA [None]
  - IMPAIRED SELF-CARE [None]
  - INTERSTITIAL LUNG DISEASE [None]
  - MENTAL STATUS CHANGES [None]
  - MIOSIS [None]
  - MITRAL VALVE INCOMPETENCE [None]
  - MYOCARDIAL INFARCTION [None]
  - PNEUMONIA [None]
  - PNEUMONITIS [None]
  - PULMONARY CONGESTION [None]
  - PYELONEPHRITIS [None]
  - RENAL FAILURE ACUTE [None]
  - SEPSIS [None]
  - SOMNOLENCE [None]
  - TRICUSPID VALVE INCOMPETENCE [None]
  - UNRESPONSIVE TO STIMULI [None]
  - URINARY TRACT INFECTION BACTERIAL [None]
